FAERS Safety Report 12533472 (Version 1)
Quarter: 2016Q3

REPORT INFORMATION
  Report Type: Spontaneous
  Country: BR (occurrence: BR)
  Receive Date: 20160706
  Receipt Date: 20160706
  Transmission Date: 20161109
  Serious: Yes (Hospitalization, Other)
  Sender: FDA-Public Use
  Company Number: BR-ABBVIE-12P-020-0949959-00

PATIENT
  Sex: Female
  Weight: 72 kg

DRUGS (9)
  1. DEPAKENE [Suspect]
     Active Substance: VALPROIC ACID
     Indication: EPILEPSY
     Route: 048
     Dates: end: 1998
  2. DEPAKENE [Suspect]
     Active Substance: VALPROIC ACID
     Route: 065
     Dates: start: 2009
  3. DEPAKENE [Suspect]
     Active Substance: VALPROIC ACID
     Route: 065
  4. DEPAKENE [Suspect]
     Active Substance: VALPROIC ACID
     Route: 065
  5. PHENOBARBITAL. [Concomitant]
     Active Substance: PHENOBARBITAL
     Indication: PRODUCT USED FOR UNKNOWN INDICATION
  6. DEPAKENE [Suspect]
     Active Substance: VALPROIC ACID
     Route: 048
     Dates: start: 1998
  7. CLONAZEPAM. [Concomitant]
     Active Substance: CLONAZEPAM
     Indication: PRODUCT USED FOR UNKNOWN INDICATION
     Dosage: EVENTUALLY
  8. LAMOTRIGINE. [Concomitant]
     Active Substance: LAMOTRIGINE
     Indication: PRODUCT USED FOR UNKNOWN INDICATION
  9. ATENOLOL. [Concomitant]
     Active Substance: ATENOLOL
     Indication: PRODUCT USED FOR UNKNOWN INDICATION

REACTIONS (16)
  - Pneumonia [Recovered/Resolved]
  - Post procedural haemorrhage [Recovered/Resolved]
  - Thyroid mass [Not Recovered/Not Resolved]
  - Rash macular [Recovered/Resolved]
  - Pain [Recovered/Resolved]
  - Peripheral swelling [Recovered/Resolved]
  - Leukopenia [Recovered/Resolved]
  - Lymphocytosis [Recovered/Resolved]
  - Eye pain [Recovered/Resolved]
  - Ovarian cyst [Recovered/Resolved]
  - Pyrexia [Recovered/Resolved]
  - Dengue fever [Recovered/Resolved]
  - Monocytosis [Recovered/Resolved]
  - Neck mass [Unknown]
  - Generalised erythema [Recovered/Resolved]
  - Unevaluable event [Unknown]
